FAERS Safety Report 8432641-9 (Version None)
Quarter: 2012Q2

REPORT INFORMATION
  Report Type: 
  Country: None (occurrence: None)
  Receive Date: 20120613
  Receipt Date: 20120605
  Transmission Date: 20120825
  Serious: Yes (Other)
  Sender: FDA-Public Use
  Company Number: US-JNJFOC-20120406825

PATIENT
  Age: 80 Year
  Sex: Male

DRUGS (2)
  1. XARELTO [Suspect]
     Indication: PRODUCT USED FOR UNKNOWN INDICATION
     Route: 048
  2. HYDROCHLOROTHIAZIDE [Concomitant]

REACTIONS (5)
  - DIARRHOEA [None]
  - BLOOD POTASSIUM DECREASED [None]
  - ABDOMINAL PAIN [None]
  - VOMITING [None]
  - NAUSEA [None]
